FAERS Safety Report 6899122-5 (Version None)
Quarter: 2010Q3

REPORT INFORMATION
  Report Type: 
  Country: None (occurrence: None)
  Receive Date: 20100802
  Receipt Date: 20080109
  Transmission Date: 20110219
  Serious: No
  Sender: FDA-Public Use
  Company Number: US-PFIZER INC-2007099347

PATIENT
  Sex: Female
  Weight: 51.3 kg

DRUGS (4)
  1. LYRICA [Suspect]
     Indication: FIBROMYALGIA
     Dates: start: 20071120, end: 20071122
  2. LAMICTAL [Concomitant]
  3. TRAZODONE [Concomitant]
  4. ESTRADIOL [Concomitant]

REACTIONS (6)
  - ABDOMINAL DISTENSION [None]
  - DISTURBANCE IN ATTENTION [None]
  - DIZZINESS [None]
  - MALAISE [None]
  - OROPHARYNGEAL BLISTERING [None]
  - SALIVARY HYPERSECRETION [None]
